FAERS Safety Report 7491998-6 (Version None)
Quarter: 2011Q2

REPORT INFORMATION
  Report Type: 
  Country: None (occurrence: None)
  Receive Date: 20110519
  Receipt Date: 20110516
  Transmission Date: 20111010
  Serious: Yes (Death, Hospitalization)
  Sender: FDA-Public Use
  Company Number: PHHY2011US41139

PATIENT
  Sex: Female
  Weight: 66.8 kg

DRUGS (8)
  1. PRILOSEC [Concomitant]
     Dosage: 20 MG, BID
  2. ALBUTEROL [Concomitant]
     Dosage: 2 PUFFS QID PRN
     Dates: start: 20090303
  3. LISINOPRIL [Concomitant]
     Dosage: UNK
     Dates: start: 20100305
  4. AFINITOR [Suspect]
     Indication: PANCREATIC CARCINOMA METASTATIC
     Dosage: 5 MG, DAILY
     Route: 048
     Dates: start: 20100316, end: 20100318
  5. CITALOPRAM [Concomitant]
     Dosage: 40 MG, QD
  6. CREON [Concomitant]
     Dosage: UNK
     Dates: start: 20100201
  7. NOVOLOG [Concomitant]
     Dosage: UNK
     Dates: start: 20100305
  8. POTASSIUM CHLORIDE [Concomitant]
     Dosage: 10 MEQ, QD
     Dates: start: 20091110

REACTIONS (5)
  - VOLVULUS [None]
  - NEOPLASM MALIGNANT [None]
  - INTESTINAL OBSTRUCTION [None]
  - ABDOMINAL PAIN [None]
  - ASCITES [None]
